FAERS Safety Report 22056422 (Version 2)
Quarter: 2023Q2

REPORT INFORMATION
  Report Type: Report from Study
  Country: CN (occurrence: CN)
  Receive Date: 20230302
  Receipt Date: 20230511
  Transmission Date: 20230722
  Serious: Yes (Other)
  Sender: FDA-Public Use
  Company Number: CN-BRISTOL-MYERS SQUIBB COMPANY-2023-023901

PATIENT
  Age: 73 Year
  Sex: Male
  Weight: 59 kg

DRUGS (1)
  1. VIDAZA [Suspect]
     Active Substance: AZACITIDINE
     Indication: Myelodysplastic syndrome
     Dosage: ONCE A DAY (QD)
     Route: 058
     Dates: start: 20191024, end: 20200325

REACTIONS (9)
  - Constipation [Recovered/Resolved]
  - Pulmonary arterial hypertension [Recovered/Resolved with Sequelae]
  - Cor pulmonale [Not Recovered/Not Resolved]
  - Arteriosclerosis [Not Recovered/Not Resolved]
  - Diarrhoea [Recovered/Resolved]
  - Myelosuppression [Not Recovered/Not Resolved]
  - Gastroenteritis [Not Recovered/Not Resolved]
  - Vomiting [Recovered/Resolved]
  - Hypokalaemia [Recovered/Resolved]

NARRATIVE: CASE EVENT DATE: 20191125
